FAERS Safety Report 4978543-1 (Version None)
Quarter: 2006Q2

REPORT INFORMATION
  Report Type: 
  Country: None (occurrence: None)
  Receive Date: 20060414
  Receipt Date: 20060330
  Transmission Date: 20061013
  Serious: Yes (Death)
  Sender: FDA-Public Use
  Company Number: SUS1-2006-00350

PATIENT
  Age: 24 Year
  Sex: Female

DRUGS (1)
  1. ADDERALL XR 30 [Suspect]
     Indication: ATTENTION DEFICIT/HYPERACTIVITY DISORDER
     Dosage: 20 MG, DAILY
     Dates: start: 20060120, end: 20060301

REACTIONS (3)
  - CARDIAC ARREST [None]
  - COMA [None]
  - RESPIRATORY ARREST [None]
